FAERS Safety Report 24774496 (Version 1)
Quarter: 2024Q4

REPORT INFORMATION
  Report Type: Spontaneous
  Country: US (occurrence: US)
  Receive Date: 20241225
  Receipt Date: 20241225
  Transmission Date: 20250115
  Serious: No
  Sender: ACCORD
  Company Number: US-Accord-444116

PATIENT
  Age: 31 Year
  Sex: Male
  Weight: 95.25 kg

DRUGS (1)
  1. BUPROPION HYDROCHLORIDE [Suspect]
     Active Substance: BUPROPION HYDROCHLORIDE
     Indication: Depression
     Dosage: STRENGTH: 150MG, EXTENDED RELEASE, DAILY
     Route: 048
     Dates: start: 20240807

REACTIONS (1)
  - Product odour abnormal [Unknown]

NARRATIVE: CASE EVENT DATE: 20240814
